FAERS Safety Report 17317041 (Version 1)
Quarter: 2020Q1

REPORT INFORMATION
  Report Type: Spontaneous
  Country: DE (occurrence: DE)
  Receive Date: 20200124
  Receipt Date: 20200124
  Transmission Date: 20200409
  Serious: Yes (Hospitalization, Other)
  Sender: FDA-Public Use
  Company Number: DE-MYLANLABS-2020M1007280

PATIENT
  Sex: Male

DRUGS (2)
  1. MIRTAZAPINE. [Suspect]
     Active Substance: MIRTAZAPINE
     Indication: DEPRESSION
     Dosage: UNK
  2. REMERGIL [Suspect]
     Active Substance: MIRTAZAPINE
     Indication: DEPRESSION
     Dosage: 90 MILLIGRAM, QD
     Dates: start: 2018

REACTIONS (7)
  - Femoral neck fracture [Unknown]
  - Blood creatinine increased [Unknown]
  - Neurological decompensation [Unknown]
  - Polyneuropathy [Unknown]
  - Suicidal ideation [Unknown]
  - Blood creatine phosphokinase increased [Unknown]
  - Depression [Unknown]

NARRATIVE: CASE EVENT DATE: 2019
